FAERS Safety Report 10035940 (Version 5)
Quarter: 2014Q4

REPORT INFORMATION
  Report Type: Report from Study
  Country: JP (occurrence: JP)
  Receive Date: 20140325
  Receipt Date: 20141231
  Transmission Date: 20150528
  Serious: Yes (Other)
  Sender: FDA-Public Use
  Company Number: PHHY2013JP091045

PATIENT
  Age: 30 Year
  Sex: Female

DRUGS (38)
  1. CLOZARIL [Suspect]
     Active Substance: CLOZAPINE
     Dosage: 200 MG, QD
     Route: 048
     Dates: start: 20130419, end: 20130502
  2. CLOZARIL [Suspect]
     Active Substance: CLOZAPINE
     Dosage: 400 MG, QD
     Route: 048
     Dates: start: 20130520, end: 20130523
  3. CLOZARIL [Suspect]
     Active Substance: CLOZAPINE
     Dosage: 400 MG, QD
     Route: 048
     Dates: start: 20130913
  4. MAGNESIUM OXIDE. [Concomitant]
     Active Substance: MAGNESIUM OXIDE
     Dosage: 1980 MG, UNK
     Route: 048
     Dates: start: 20130329
  5. CLOZARIL [Suspect]
     Active Substance: CLOZAPINE
     Dosage: 25 MG, QD
     Route: 048
     Dates: start: 20130330, end: 20130401
  6. CLOZARIL [Suspect]
     Active Substance: CLOZAPINE
     Dosage: 250 MG, QD
     Route: 048
     Dates: start: 20130510, end: 20130512
  7. CLOZARIL [Suspect]
     Active Substance: CLOZAPINE
     Dosage: 300 MG, QD
     Route: 048
     Dates: start: 20130513, end: 20130516
  8. CLOZARIL [Suspect]
     Active Substance: CLOZAPINE
     Dosage: 350 MG, QD
     Route: 048
     Dates: start: 20130517, end: 20130519
  9. CLOZARIL [Suspect]
     Active Substance: CLOZAPINE
     Dosage: 400 MG, QD
     Route: 048
     Dates: start: 20130930, end: 20131009
  10. PANTOSIN [Concomitant]
     Active Substance: PANTETHINE
     Indication: CONSTIPATION
     Dosage: 300 MG, UNK
     Route: 048
     Dates: start: 20140224
  11. CLOZARIL [Suspect]
     Active Substance: CLOZAPINE
     Dosage: 125 MG, QD
     Route: 048
     Dates: start: 20130409, end: 20130411
  12. CLOZARIL [Suspect]
     Active Substance: CLOZAPINE
     Dosage: 150 MG, QD
     Route: 048
     Dates: start: 20130412, end: 20130414
  13. CLOZARIL [Suspect]
     Active Substance: CLOZAPINE
     Dosage: 450 MG, QD
     Route: 048
     Dates: start: 20130524, end: 20130526
  14. CLOZARIL [Suspect]
     Active Substance: CLOZAPINE
     Dosage: 300 MG, QD
     Route: 048
     Dates: start: 20131114
  15. MAGNESIUM OXIDE. [Concomitant]
     Active Substance: MAGNESIUM OXIDE
     Indication: PRODUCT USED FOR UNKNOWN INDICATION
     Dosage: UNK
     Route: 048
     Dates: start: 20130630
  16. GASMOTIN [Concomitant]
     Active Substance: MOSAPRIDE CITRATE
     Dosage: 15 MG, UNK
     Route: 048
  17. AKINETON [Concomitant]
     Active Substance: BIPERIDEN HYDROCHLORIDE
     Indication: PRODUCT USED FOR UNKNOWN INDICATION
     Route: 048
     Dates: start: 20130630, end: 20130821
  18. GASCON [Concomitant]
     Active Substance: DIMETHICONE
     Indication: CONSTIPATION
     Dosage: 120 MG, UNK
     Route: 048
     Dates: start: 20130930
  19. CLOZARIL [Suspect]
     Active Substance: CLOZAPINE
     Dosage: 50 MG, QD
     Route: 048
     Dates: start: 20130402, end: 20130404
  20. CLOZARIL [Suspect]
     Active Substance: CLOZAPINE
     Indication: SCHIZOPHRENIA
     Dosage: 12.5 MG, QD
     Route: 048
     Dates: start: 20130329, end: 20130329
  21. PURSENID [Concomitant]
     Dosage: 36 MG, UNK
     Route: 048
     Dates: start: 20130329
  22. GASMOTIN [Concomitant]
     Active Substance: MOSAPRIDE CITRATE
     Dosage: UNK
     Route: 048
     Dates: start: 20130630
  23. DEPAS [Concomitant]
     Active Substance: ETIZOLAM
     Indication: SCHIZOPHRENIA, PARANOID TYPE
     Dosage: 3 MG, UNK
     Route: 048
     Dates: start: 20130329, end: 20130418
  24. CLOZARIL [Suspect]
     Active Substance: CLOZAPINE
     Dosage: 100 MG, QD
     Route: 048
     Dates: start: 20130407, end: 20130408
  25. CLOZARIL [Suspect]
     Active Substance: CLOZAPINE
     Dosage: 550 MG, QD
     Route: 048
     Dates: start: 20130531, end: 20130602
  26. MAGNESIUM OXIDE. [Concomitant]
     Active Substance: MAGNESIUM OXIDE
     Dosage: 1980 MG, UNK
     Route: 048
  27. CLOZARIL [Suspect]
     Active Substance: CLOZAPINE
     Dosage: 175 MG, QD
     Route: 048
     Dates: start: 20130415, end: 20130418
  28. CLOZARIL [Suspect]
     Active Substance: CLOZAPINE
     Dosage: 225 MG, QD
     Route: 048
     Dates: start: 20130503, end: 20130509
  29. PURSENID [Concomitant]
     Indication: PRODUCT USED FOR UNKNOWN INDICATION
     Dosage: UNK
     Route: 048
     Dates: start: 20130630
  30. GASMOTIN [Concomitant]
     Active Substance: MOSAPRIDE CITRATE
     Indication: PRODUCT USED FOR UNKNOWN INDICATION
     Dosage: 15 MG, UNK
     Route: 048
     Dates: start: 20130329
  31. BIOFERMIN [Concomitant]
     Active Substance: BACILLUS SUBTILIS\LACTOBACILLUS ACIDOPHILUS\STREPTOCOCCUS FAECAIS
     Indication: CONSTIPATION
     Dosage: 6 G, UNK
     Route: 048
     Dates: start: 20140116
  32. DAIKENCHUTO [Concomitant]
     Active Substance: HERBALS
     Indication: CONSTIPATION
     Dosage: 15 G, UNK
     Route: 048
     Dates: start: 20131018
  33. CLOZARIL [Suspect]
     Active Substance: CLOZAPINE
     Dosage: 75 MG, QD
     Route: 048
     Dates: start: 20130405, end: 20130406
  34. CLOZARIL [Suspect]
     Active Substance: CLOZAPINE
     Dosage: 500 MG, QD
     Route: 048
     Dates: start: 20130527, end: 20130530
  35. CLOZARIL [Suspect]
     Active Substance: CLOZAPINE
     Dosage: 600 MG, QD
     Route: 048
     Dates: start: 20130603, end: 20130821
  36. CLOZARIL [Suspect]
     Active Substance: CLOZAPINE
     Dosage: 300 MG, QD
     Route: 048
     Dates: start: 20130830, end: 20130912
  37. CLOZARIL [Suspect]
     Active Substance: CLOZAPINE
     Dosage: 500 MG, QD
     Route: 048
     Dates: start: 20131010, end: 20131113
  38. PURSENID [Concomitant]
     Dosage: 36 MG, UNK
     Route: 048

REACTIONS (10)
  - Heart rate increased [Unknown]
  - Blood pressure decreased [Unknown]
  - Loss of consciousness [Recovering/Resolving]
  - Eosinophil count increased [Unknown]
  - Electrocardiogram QT prolonged [Recovering/Resolving]
  - Neutrophil count increased [Unknown]
  - Seizure [Recovering/Resolving]
  - White blood cell count increased [Unknown]
  - Haemoglobin decreased [Unknown]
  - Parkinsonism [Not Recovered/Not Resolved]

NARRATIVE: CASE EVENT DATE: 20130329
